FAERS Safety Report 9254470 (Version 1)
Quarter: 2013Q2

REPORT INFORMATION
  Report Type: Spontaneous
  Country: US (occurrence: US)
  Receive Date: 20130425
  Receipt Date: 20130425
  Transmission Date: 20140414
  Serious: No
  Sender: FDA-Public Use
  Company Number: US-MYLANLABS-2013S1002093

PATIENT
  Sex: Female

DRUGS (3)
  1. LITHIUM CARBONATE EXTENDED-RELEASE TABLETS USP [Suspect]
     Indication: BIPOLAR DISORDER
     Route: 048
     Dates: start: 20130119
  2. LITHIUM CARBONATE EXTENDED-RELEASE TABLETS USP [Suspect]
     Indication: DEPRESSION
     Route: 048
     Dates: start: 20130119
  3. LITHIUM CARBONATE EXTENDED-RELEASE TABLETS USP [Suspect]
     Indication: ALCOHOLISM
     Route: 048
     Dates: start: 20130119

REACTIONS (1)
  - Rash [Not Recovered/Not Resolved]
